FAERS Safety Report 8874838 (Version 1)
Quarter: 2012Q4

REPORT INFORMATION
  Report Type: 
  Country: US (occurrence: US)
  Receive Date: 20121030
  Receipt Date: 20121030
  Transmission Date: 20130627
  Serious: Yes (Hospitalization)
  Sender: FDA-Public Use
  Company Number: US-SANOFI-AVENTIS-2012SA076969

PATIENT
  Age: 27 Year
  Sex: Female
  Weight: 78 kg

DRUGS (8)
  1. AMBIEN [Suspect]
     Indication: INSOMNIA
     Route: 048
     Dates: start: 2011
  2. FOLIC ACID [Suspect]
     Indication: PREGNANCY
     Route: 048
     Dates: start: 2012
  3. FOLIC ACID [Suspect]
     Indication: SICKLE CELL DISEASE
     Route: 048
     Dates: start: 2012
  4. ZANTAC [Suspect]
     Indication: ACID REFLUX (ESOPHAGEAL)
     Route: 048
     Dates: start: 2012
  5. PERCOCET [Suspect]
     Indication: CHRONIC PAIN
     Route: 048
     Dates: start: 2012
  6. PHENERGAN [Suspect]
     Indication: NAUSEA
     Route: 048
     Dates: start: 2011
  7. XANAX [Suspect]
     Indication: ANXIETY
     Route: 048
     Dates: start: 2011, end: 201206
  8. PRENATAL VITAMINS [Suspect]
     Indication: PREGNANCY
     Route: 048
     Dates: start: 201206

REACTIONS (3)
  - Dehydration [Unknown]
  - Exposure during pregnancy [Unknown]
  - Incorrect drug administration duration [Unknown]
